FAERS Safety Report 6750545-4 (Version None)
Quarter: 2010Q2

REPORT INFORMATION
  Report Type: 
  Country: None (occurrence: None)
  Receive Date: 20100528
  Receipt Date: 20100528
  Transmission Date: 20101027
  Serious: Yes (Other)
  Sender: FDA-Public Use
  Company Number: None

PATIENT
  Age: 62 Year
  Sex: Female
  Weight: 99.7913 kg

DRUGS (1)
  1. LISINOPRIL [Suspect]
     Indication: CARDIOMYOPATHY
     Dosage: 2.5 DAILY PO
     Route: 048

REACTIONS (5)
  - CHEST PAIN [None]
  - DEPRESSION [None]
  - DIZZINESS [None]
  - HYPOGLYCAEMIA [None]
  - OEDEMA [None]
